FAERS Safety Report 5355822-X (Version None)
Quarter: 2007Q2

REPORT INFORMATION
  Report Type: 
  Country: None (occurrence: None)
  Receive Date: 20070530
  Receipt Date: 20061006
  Transmission Date: 20071010
  Serious: Yes (Other)
  Sender: FDA-Public Use
  Company Number: US200610001561

PATIENT
  Age: 40 Year
  Sex: Female

DRUGS (3)
  1. ZYPREXA [Suspect]
     Indication: MENTAL DISORDER
     Dosage: 20 MG, ORAL
     Route: 048
     Dates: start: 20040801
  2. DEPAKOTE [Concomitant]
  3. EFFEXOR [Concomitant]

REACTIONS (3)
  - DIABETES MELLITUS [None]
  - OEDEMA PERIPHERAL [None]
  - WEIGHT INCREASED [None]
